FAERS Safety Report 14283292 (Version 2)
Quarter: 2019Q1

REPORT INFORMATION
  Report Type: Report from Study
  Country: CO (occurrence: CO)
  Receive Date: 20171213
  Receipt Date: 20190320
  Transmission Date: 20190417
  Serious: Yes (Life-Threatening, Hospitalization, Other)
  Sender: FDA-Public Use
  Company Number: CO-GLAXOSMITHKLINE-CO2017GSK190791

PATIENT
  Age: 63 Year
  Sex: Female
  Weight: 160 kg

DRUGS (13)
  1. DOLEX (CLONIXIN LYSINE) [Concomitant]
  2. LYRICA [Concomitant]
     Active Substance: PREGABALIN
  3. LOSARTAN. [Suspect]
     Active Substance: LOSARTAN
     Indication: BLOOD PRESSURE MEASUREMENT
     Dosage: 50 MG, QD
     Route: 048
  4. EXEMESTANE. [Concomitant]
     Active Substance: EXEMESTANE
  5. DICLOFENAC [Suspect]
     Active Substance: DICLOFENAC
     Indication: PRODUCT USED FOR UNKNOWN INDICATION
  6. AFINITOR [Suspect]
     Active Substance: EVEROLIMUS
     Indication: BREAST CANCER
     Dosage: 10 MG, QD
     Route: 048
     Dates: start: 20151217
  7. ACETAMINOPHEN. [Concomitant]
     Active Substance: ACETAMINOPHEN
  8. OMEPRAZOLE. [Concomitant]
     Active Substance: OMEPRAZOLE
  9. ASAWIN [Concomitant]
     Active Substance: ASPIRIN
  10. NORVIR [Concomitant]
     Active Substance: RITONAVIR
  11. JANUMET [Concomitant]
     Active Substance: METFORMIN HYDROCHLORIDE\SITAGLIPTIN PHOSPHATE
  12. FUROSEMIDE. [Concomitant]
     Active Substance: FUROSEMIDE
  13. GLIBENCLAMIDE [Suspect]
     Active Substance: GLYBURIDE
     Indication: BLOOD GLUCOSE ABNORMAL
     Dosage: 5 MG, TID
     Route: 048

REACTIONS (54)
  - Feeling abnormal [Unknown]
  - Joint injury [Unknown]
  - Metastases to lung [Unknown]
  - Gait disturbance [Unknown]
  - Tinnitus [Unknown]
  - Oropharyngeal pain [Unknown]
  - Skin discolouration [Unknown]
  - Arthralgia [Unknown]
  - Cough [Unknown]
  - Onychalgia [Unknown]
  - Head injury [Unknown]
  - Back injury [Unknown]
  - Venous valve ruptured [Unknown]
  - Choking [Unknown]
  - Malignant neoplasm progression [Unknown]
  - Swelling face [Unknown]
  - Skeletal injury [Unknown]
  - Fall [Unknown]
  - General physical health deterioration [Unknown]
  - Bone pain [Unknown]
  - Asthenia [Unknown]
  - Headache [Unknown]
  - Agitation [Unknown]
  - Malaise [Unknown]
  - Pain in extremity [Unknown]
  - Abdominal pain [Unknown]
  - Influenza [Not Recovered/Not Resolved]
  - Pruritus generalised [Unknown]
  - Dizziness [Unknown]
  - Haemorrhage [Unknown]
  - Memory impairment [Unknown]
  - Back pain [Unknown]
  - Mood altered [Unknown]
  - Varicose vein [Unknown]
  - Joint swelling [Unknown]
  - Nervous system disorder [Unknown]
  - Underweight [Unknown]
  - Pyrexia [Unknown]
  - Eating disorder [Unknown]
  - Depressed mood [Unknown]
  - Productive cough [Unknown]
  - Musculoskeletal chest pain [Unknown]
  - Vulvovaginal inflammation [Unknown]
  - Peripheral swelling [Unknown]
  - Abdominal pain upper [Unknown]
  - Weight decreased [Unknown]
  - Traumatic lung injury [Unknown]
  - Breast cancer [Unknown]
  - Disorientation [Unknown]
  - Abdominal discomfort [Unknown]
  - Vomiting [Unknown]
  - Insomnia [Unknown]
  - Dyspnoea [Unknown]
  - Blood glucose increased [Unknown]

NARRATIVE: CASE EVENT DATE: 2015
